FAERS Safety Report 24046682 (Version 1)
Quarter: 2024Q3

REPORT INFORMATION
  Report Type: Spontaneous
  Country: US (occurrence: US)
  Receive Date: 20240703
  Receipt Date: 20240703
  Transmission Date: 20241017
  Serious: Yes (Hospitalization, Other)
  Sender: ENDO
  Company Number: US-ENDO USA, INC.-2024-002712

PATIENT
  Age: 14 Year
  Sex: Female

DRUGS (1)
  1. KETALAR [Suspect]
     Active Substance: KETAMINE HYDROCHLORIDE
     Indication: Product used for unknown indication
     Dosage: UNK UNKNOWN, BIWEEKLY (TWICE WEEKLY)
     Route: 065

REACTIONS (8)
  - Acute left ventricular failure [Recovered/Resolved]
  - Mitral valve incompetence [Unknown]
  - Tricuspid valve incompetence [Unknown]
  - Pleural effusion [Unknown]
  - Ascites [Unknown]
  - Congestive hepatopathy [Unknown]
  - Drug abuse [Unknown]
  - Cystitis [Unknown]
